FAERS Safety Report 22051637 (Version 2)
Quarter: 2023Q1

REPORT INFORMATION
  Report Type: Report from Study
  Country: GB (occurrence: GB)
  Receive Date: 20230302
  Receipt Date: 20230308
  Transmission Date: 20230418
  Serious: Yes (Other)
  Sender: FDA-Public Use
  Company Number: GB-ABBVIE-4307931

PATIENT
  Sex: Male

DRUGS (1)
  1. HUMIRA [Suspect]
     Active Substance: ADALIMUMAB
     Indication: Crohn^s disease
     Dosage: FORM STRENGTH: 40MG
     Route: 058

REACTIONS (6)
  - Gastrointestinal obstruction [Unknown]
  - Crohn^s disease [Not Recovered/Not Resolved]
  - Rectal haemorrhage [Unknown]
  - Pain [Recovering/Resolving]
  - Malaise [Unknown]
  - Frequent bowel movements [Unknown]
